FAERS Safety Report 14573307 (Version 1)
Quarter: 2018Q1

REPORT INFORMATION
  Report Type: Report from Study
  Country: None (occurrence: BR)
  Receive Date: 20180226
  Receipt Date: 20180226
  Transmission Date: 20180509
  Serious: Yes (Other)
  Sender: FDA-Public Use
  Company Number: BR-ABBVIE-18K-020-2268518-00

PATIENT
  Age: 76 Year
  Sex: Female
  Weight: 62 kg

DRUGS (1)
  1. HUMIRA [Suspect]
     Active Substance: ADALIMUMAB
     Indication: RHEUMATOID ARTHRITIS
     Route: 058
     Dates: start: 20161121

REACTIONS (6)
  - Ulcerative keratitis [Recovering/Resolving]
  - Retinal disorder [Not Recovered/Not Resolved]
  - Rash macular [Not Recovered/Not Resolved]
  - Hypersensitivity [Not Recovered/Not Resolved]
  - Diarrhoea [Recovering/Resolving]
  - Weight decreased [Unknown]

NARRATIVE: CASE EVENT DATE: 201708
